FAERS Safety Report 6186176-7 (Version None)
Quarter: 2009Q2

REPORT INFORMATION
  Report Type: 
  Country: None (occurrence: None)
  Receive Date: 20090511
  Receipt Date: 20090501
  Transmission Date: 20091009
  Serious: Yes (Other)
  Sender: FDA-Public Use
  Company Number: GB-PFIZER INC-2009206377

PATIENT
  Age: 44 Year

DRUGS (1)
  1. CHAMPIX [Suspect]
     Dosage: 1 MG, 2X/DAY
     Route: 048

REACTIONS (1)
  - HAEMATEMESIS [None]
